FAERS Safety Report 4687594-6 (Version None)
Quarter: 2005Q2

REPORT INFORMATION
  Report Type: 
  Country: None (occurrence: None)
  Receive Date: 20050610
  Receipt Date: 20050601
  Transmission Date: 20051028
  Serious: Yes (Death, Other)
  Sender: FDA-Public Use
  Company Number: FI-BRISTOL-MYERS SQUIBB COMPANY-12990941

PATIENT
  Age: 81 Year
  Sex: Female

DRUGS (13)
  1. TREXAN (ORION) [Suspect]
     Indication: RHEUMATOID ARTHRITIS
     Dates: start: 20031015, end: 20050224
  2. FURESIS-COMP [Concomitant]
     Dates: end: 20050224
  3. SOMAC [Concomitant]
     Dates: end: 20050224
  4. NORVASC [Concomitant]
     Dates: end: 20050224
  5. SELOKEN [Concomitant]
     Dates: end: 20050224
  6. ACETAMINOPHEN [Concomitant]
     Dates: end: 20050224
  7. NITROSID [Concomitant]
  8. PRIMASPAN [Concomitant]
     Dates: end: 20050224
  9. IMOVANE [Concomitant]
     Dates: end: 20050224
  10. MEPROBAMATE [Concomitant]
     Dates: end: 20050224
  11. DINIT [Concomitant]
  12. CELEBRA [Concomitant]
     Dates: end: 20050224
  13. PANOCOD [Concomitant]
     Dates: end: 20050224

REACTIONS (3)
  - DEATH [None]
  - LOSS OF CONSCIOUSNESS [None]
  - PANCYTOPENIA [None]
